FAERS Safety Report 10368986 (Version 2)
Quarter: 2014Q3

REPORT INFORMATION
  Report Type: Spontaneous
  Country: HR (occurrence: HR)
  Receive Date: 20140807
  Receipt Date: 20140829
  Transmission Date: 20150326
  Serious: Yes (Other)
  Sender: FDA-Public Use
  Company Number: HR-PFIZER INC-2014217403

PATIENT
  Age: 59 Year

DRUGS (4)
  1. FOSTER [Concomitant]
     Active Substance: BECLOMETHASONE\FORMOTEROL
     Indication: ASTHMA
     Dosage: 1 DF (ONE BREATH) ONCE DAILY
     Route: 055
  2. TRITACE [Concomitant]
     Active Substance: RAMIPRIL
     Indication: ESSENTIAL HYPERTENSION
     Dosage: 2.5 MG ONCE DAILY
     Route: 048
  3. CARDIOPIRIN [Concomitant]
     Active Substance: ASPIRIN
     Dosage: 100 MG ONCE DAILY
     Route: 048
  4. DALACIN C [Suspect]
     Active Substance: CLINDAMYCIN PHOSPHATE
     Indication: PULPITIS DENTAL
     Dosage: 300 MG THREE TIMES PER DAY
     Route: 048
     Dates: start: 20140708, end: 20140709

REACTIONS (7)
  - Face oedema [Unknown]
  - Eyelid oedema [Unknown]
  - Erythema [Unknown]
  - Pruritus [Unknown]
  - Burning sensation [Unknown]
  - Lip oedema [Unknown]
  - Dry mouth [Unknown]

NARRATIVE: CASE EVENT DATE: 20140709
